FAERS Safety Report 6654363-7 (Version None)
Quarter: 2010Q1

REPORT INFORMATION
  Report Type: 
  Country: None (occurrence: None)
  Receive Date: 20100326
  Receipt Date: 20100317
  Transmission Date: 20100710
  Serious: Yes (Other)
  Sender: FDA-Public Use
  Company Number: GB-PFIZER INC-2010034337

PATIENT
  Age: 68 Year
  Sex: Female

DRUGS (1)
  1. CARDURA [Suspect]

REACTIONS (1)
  - RECTAL HAEMORRHAGE [None]
